FAERS Safety Report 25252389 (Version 2)
Quarter: 2025Q2

REPORT INFORMATION
  Report Type: Report from Study
  Country: CR (occurrence: CR)
  Receive Date: 20250429
  Receipt Date: 20250502
  Transmission Date: 20250717
  Serious: Yes (Life-Threatening, Hospitalization, Other)
  Sender: NOVARTIS
  Company Number: CR-002147023-NVSC2024CR114706

PATIENT
  Age: 50 Year
  Sex: Female

DRUGS (1)
  1. KESIMPTA [Suspect]
     Active Substance: OFATUMUMAB
     Indication: Multiple sclerosis
     Dosage: 20 MG, QMO
     Route: 058
     Dates: start: 20240528

REACTIONS (28)
  - Anxiety [Unknown]
  - Feeling abnormal [Unknown]
  - Multiple sclerosis relapse [Unknown]
  - Kidney infection [Unknown]
  - Pain [Unknown]
  - Muscle rigidity [Recovering/Resolving]
  - Asthenia [Unknown]
  - Movement disorder [Recovering/Resolving]
  - Vomiting [Unknown]
  - Headache [Recovered/Resolved]
  - Chills [Recovered/Resolved]
  - Hypoaesthesia oral [Unknown]
  - Influenza [Recovered/Resolved]
  - Pyrexia [Recovered/Resolved]
  - Headache [Not Recovered/Not Resolved]
  - Depressed mood [Unknown]
  - Pigmentation disorder [Unknown]
  - Balance disorder [Not Recovered/Not Resolved]
  - Crying [Unknown]
  - Fatigue [Unknown]
  - Malaise [Unknown]
  - Diarrhoea [Unknown]
  - Pyrexia [Unknown]
  - Amenorrhoea [Unknown]
  - Blood urine present [Unknown]
  - Menstruation irregular [Unknown]
  - Anaemia [Unknown]
  - Gastritis [Unknown]

NARRATIVE: CASE EVENT DATE: 20240528
